FAERS Safety Report 6266966-2 (Version None)
Quarter: 2009Q3

REPORT INFORMATION
  Report Type: 
  Country: None (occurrence: None)
  Receive Date: 20090714
  Receipt Date: 20090630
  Transmission Date: 20100115
  Serious: Yes (Hospitalization)
  Sender: FDA-Public Use
  Company Number: US-ROCHE-642361

PATIENT
  Sex: Female
  Weight: 117.9 kg

DRUGS (9)
  1. CAPECITABINE [Suspect]
     Indication: BREAST CANCER
     Route: 065
  2. DOCETAXEL [Suspect]
     Indication: BREAST CANCER
     Route: 065
  3. PROZAC [Concomitant]
     Indication: DEPRESSION
     Route: 048
  4. CLARINEX [Concomitant]
     Route: 048
  5. ARIMIDEX [Concomitant]
     Dates: start: 20060818
  6. NAPROSYN [Concomitant]
     Route: 048
  7. LEVAQUIN [Concomitant]
     Dates: start: 20070329
  8. LEVAQUIN [Concomitant]
     Dates: start: 20070423, end: 20070425
  9. HYDROCODONE BITARTRATE [Concomitant]
     Indication: PAIN

REACTIONS (1)
  - BREAST CELLULITIS [None]
